FAERS Safety Report 23675795 (Version 2)
Quarter: 2024Q1

REPORT INFORMATION
  Report Type: Spontaneous
  Country: IT (occurrence: IT)
  Receive Date: 20240327
  Receipt Date: 20240328
  Transmission Date: 20240410
  Serious: Yes (Other)
  Sender: FDA-Public Use
  Company Number: IT-STADA-01220036

PATIENT
  Sex: Male

DRUGS (9)
  1. CARIPRAZINE [Interacting]
     Active Substance: CARIPRAZINE
     Indication: Schizophrenia
     Route: 065
  2. CARIPRAZINE [Interacting]
     Active Substance: CARIPRAZINE
     Indication: Schizophrenia
     Route: 065
  3. CARIPRAZINE [Interacting]
     Active Substance: CARIPRAZINE
     Indication: Schizophrenia
     Route: 065
  4. LORAZEPAM [Concomitant]
     Active Substance: LORAZEPAM
     Indication: Schizophrenia
     Route: 065
  5. CLOZAPINE [Interacting]
     Active Substance: CLOZAPINE
     Indication: Schizophrenia
     Route: 065
  6. RISPERIDONE-GA [Concomitant]
     Indication: Schizophrenia
     Route: 065
  7. OLANZAPINE [Suspect]
     Active Substance: OLANZAPINE
     Indication: Schizophrenia
     Route: 065
  8. HALOPERIDOL [Concomitant]
     Active Substance: HALOPERIDOL
     Indication: Schizophrenia
     Route: 065
  9. ARIPIPRAZOLE [Suspect]
     Active Substance: ARIPIPRAZOLE
     Indication: Schizophrenia
     Route: 065

REACTIONS (4)
  - Antipsychotic drug level decreased [Unknown]
  - Drug interaction [Unknown]
  - Akathisia [Unknown]
  - Drug ineffective [Unknown]
